FAERS Safety Report 19166959 (Version 2)
Quarter: 2021Q3

REPORT INFORMATION
  Report Type: Spontaneous
  Country: US (occurrence: US)
  Receive Date: 20210421
  Receipt Date: 20210719
  Transmission Date: 20211014
  Serious: Yes (Other)
  Sender: FDA-Public Use
  Company Number: US-TEVA-2021-US-1903572

PATIENT

DRUGS (5)
  1. VALSARTAN AUROBINDO [Suspect]
     Active Substance: VALSARTAN
     Indication: HYPERTENSION
     Dosage: DOSE: 320 MG
     Route: 065
  2. VALSARTAN SOLCO [Suspect]
     Active Substance: VALSARTAN
     Indication: HYPERTENSION
     Dosage: DOSE: 320 MG
     Route: 065
     Dates: start: 20180910, end: 20181010
  3. VALSARTAN SANDOZ [Suspect]
     Active Substance: VALSARTAN
     Indication: HYPERTENSION
     Dosage: DOSE: 160 MG
     Route: 065
  4. VALSARTAN AND HYDROCHLOROTHIAZIDE MACLEODS [Suspect]
     Active Substance: HYDROCHLOROTHIAZIDE\VALSARTAN
     Indication: HYPERTENSION
     Dosage: DOSAGE: 25/320 MG
     Route: 065
  5. VALSARTAN SOLCO [Suspect]
     Active Substance: VALSARTAN
     Dosage: DOSE: 320 MG
     Route: 065
     Dates: start: 20180910, end: 20181010

REACTIONS (1)
  - Prostate cancer [Unknown]
